FAERS Safety Report 19427412 (Version 2)
Quarter: 2021Q3

REPORT INFORMATION
  Report Type: Other
  Country: IE (occurrence: IE)
  Receive Date: 20210616
  Receipt Date: 20210706
  Transmission Date: 20211014
  Serious: Yes (Other)
  Sender: FDA-Public Use
  Company Number: IE-ROCHE-2850526

PATIENT
  Age: 69 Year
  Sex: Female

DRUGS (1)
  1. ROACTEMRA [Suspect]
     Active Substance: TOCILIZUMAB
     Indication: RHEUMATOID ARTHRITIS
     Route: 058
     Dates: start: 20210528

REACTIONS (3)
  - Arthralgia [Recovering/Resolving]
  - Pain [Recovering/Resolving]
  - Kidney infection [Recovered/Resolved]

NARRATIVE: CASE EVENT DATE: 20210615
